FAERS Safety Report 15501559 (Version 2)
Quarter: 2018Q4

REPORT INFORMATION
  Report Type: Spontaneous
  Country: GB (occurrence: GB)
  Receive Date: 20181015
  Receipt Date: 20181227
  Transmission Date: 20190205
  Serious: Yes (Disabling, Other)
  Sender: FDA-Public Use
  Company Number: GB-ASTRAZENECA-2018SF31973

PATIENT
  Age: 49 Year
  Sex: Female
  Weight: 52.6 kg

DRUGS (1)
  1. ZOMIG [Suspect]
     Active Substance: ZOLMITRIPTAN
     Indication: MIGRAINE
     Dosage: 1 SPRAY AT START OF MIGRAINE. REPEAT AFTER 2 HOURS IF NEEDED.
     Route: 045
     Dates: end: 201805

REACTIONS (10)
  - Arthralgia [Recovered/Resolved]
  - Disorientation [Unknown]
  - Joint stiffness [Recovered/Resolved]
  - Influenza like illness [Unknown]
  - Fatigue [Unknown]
  - Speech disorder [Unknown]
  - Clumsiness [Unknown]
  - Disturbance in attention [Unknown]
  - Pain [Unknown]
  - Aphasia [Unknown]
